FAERS Safety Report 7366862-3 (Version None)
Quarter: 2011Q1

REPORT INFORMATION
  Report Type: 
  Country: None (occurrence: None)
  Receive Date: 20110322
  Receipt Date: 20110314
  Transmission Date: 20110831
  Serious: Yes (Hospitalization)
  Sender: FDA-Public Use
  Company Number: A0886844A

PATIENT
  Age: 60 Year
  Sex: Female
  Weight: 109.1 kg

DRUGS (6)
  1. GLUCOPHAGE [Concomitant]
  2. MAXZIDE [Concomitant]
  3. ZEBETA [Concomitant]
  4. AVANDIA [Suspect]
     Dosage: 2MG PER DAY
     Route: 048
     Dates: start: 20040119, end: 20070605
  5. AVANDAMET [Suspect]
     Indication: DIABETES MELLITUS
     Route: 048
     Dates: end: 20070605
  6. LOTREL [Concomitant]

REACTIONS (5)
  - CORONARY ARTERY DISEASE [None]
  - CORONARY ARTERY BYPASS [None]
  - ARTERIOSCLEROSIS CORONARY ARTERY [None]
  - RENAL FAILURE [None]
  - ANGINA UNSTABLE [None]
